FAERS Safety Report 24652419 (Version 2)
Quarter: 2024Q4

REPORT INFORMATION
  Report Type: Spontaneous
  Country: US (occurrence: US)
  Receive Date: 20241122
  Receipt Date: 20241125
  Transmission Date: 20250115
  Serious: No
  Sender: NOVARTIS
  Company Number: US-002147023-NVSC2024US076949

PATIENT
  Age: 30 Year
  Sex: Male
  Weight: 66 kg

DRUGS (1)
  1. FABHALTA [Suspect]
     Active Substance: IPTACOPAN HYDROCHLORIDE
     Indication: Paroxysmal nocturnal haemoglobinuria
     Dosage: 200 MG, BID
     Route: 048
     Dates: start: 20240401

REACTIONS (9)
  - Ear infection [Unknown]
  - Ear pain [Unknown]
  - Pain [Unknown]
  - Myalgia [Unknown]
  - Bacterial infection [Recovered/Resolved]
  - Sputum discoloured [Recovered/Resolved]
  - Nasal discharge discolouration [Recovered/Resolved]
  - Headache [Unknown]
  - Nasopharyngitis [Recovering/Resolving]

NARRATIVE: CASE EVENT DATE: 20240501
